FAERS Safety Report 8338642-3 (Version None)
Quarter: 2012Q2

REPORT INFORMATION
  Report Type: 
  Country: None (occurrence: None)
  Receive Date: 20120504
  Receipt Date: 20120504
  Transmission Date: 20120825
  Serious: No
  Sender: FDA-Public Use
  Company Number: US-PFIZER INC-2012103318

PATIENT
  Age: 41 Year
  Sex: Male

DRUGS (2)
  1. AMLODIPINE AND ATORVASTATIN [Suspect]
     Dosage: 10 MG/20 MG
  2. CADUET [Suspect]

REACTIONS (1)
  - MUSCULOSKELETAL STIFFNESS [None]
